FAERS Safety Report 10583862 (Version 1)
Quarter: 2014Q4

REPORT INFORMATION
  Report Type: Spontaneous
  Country: PL (occurrence: None)
  Receive Date: 20141112
  Receipt Date: 20141112
  Transmission Date: 20150529
  Serious: Yes (Hospitalization)
  Sender: FDA-Public Use
  Company Number: PL-ZYDUS-005351

PATIENT
  Age: 30 Year
  Sex: Female

DRUGS (1)
  1. VALPROIC ACID (VALPROIC ACID) [Suspect]
     Active Substance: VALPROIC ACID
     Indication: SEIZURE
     Dosage: 300.00-MG-2.00 TIMES PER-1.00DAYS

REACTIONS (11)
  - Temperature intolerance [None]
  - Nail disorder [None]
  - Cyanosis [None]
  - Onycholysis [None]
  - Skin papilloma [None]
  - Burning sensation [None]
  - Peripheral coldness [None]
  - Disease recurrence [None]
  - Hyperhidrosis [None]
  - Erythema [None]
  - Nail discolouration [None]
